FAERS Safety Report 4729296-3 (Version None)
Quarter: 2005Q3

REPORT INFORMATION
  Report Type: 
  Country: None (occurrence: None)
  Receive Date: 20050729
  Receipt Date: 20040921
  Transmission Date: 20060218
  Serious: No
  Sender: FDA-Public Use
  Company Number: US-GLAXOSMITHKLINE-A0526788A

PATIENT
  Sex: Female

DRUGS (8)
  1. IMITREX [Suspect]
     Indication: MIGRAINE
     Route: 048
  2. ZOLOFT [Concomitant]
     Indication: DEPRESSION
     Route: 048
  3. MAGNESIUM OXIDE [Concomitant]
     Indication: MIGRAINE
     Route: 048
     Dates: start: 20040630
  4. LOESTRIN 1.5/30 [Concomitant]
     Indication: MENOPAUSE
     Route: 048
     Dates: start: 20010101
  5. GLUCOSAMINE [Concomitant]
     Indication: ARTHRITIS
     Route: 048
     Dates: start: 20030101
  6. MULTI-VITAMIN [Concomitant]
     Route: 048
     Dates: start: 20030101
  7. CALCIUM D [Concomitant]
     Route: 048
     Dates: start: 20030101
  8. IBUPROFEN [Concomitant]
     Indication: MIGRAINE
     Dosage: 600MG THREE TIMES PER DAY
     Route: 048
     Dates: start: 20030101

REACTIONS (1)
  - DRUG INEFFECTIVE [None]
